FAERS Safety Report 6383520-2 (Version None)
Quarter: 2009Q4

REPORT INFORMATION
  Report Type: 
  Country: None (occurrence: None)
  Receive Date: 20091001
  Receipt Date: 20090922
  Transmission Date: 20100525
  Serious: Yes (Hospitalization)
  Sender: FDA-Public Use
  Company Number: AU-ASTRAZENECA-2009SE14347

PATIENT
  Age: 77 Year
  Sex: Male

DRUGS (8)
  1. CRESTOR [Suspect]
     Route: 048
     Dates: start: 20090718, end: 20090802
  2. ADALAT [Concomitant]
  3. AVAPRO [Concomitant]
     Dosage: 300/12.5
  4. IMDUR [Concomitant]
  5. OROXINE [Concomitant]
  6. PARIET [Concomitant]
  7. SERETIDE MDI NOS [Concomitant]
  8. SPIRIVA [Concomitant]

REACTIONS (2)
  - ABDOMINAL DISCOMFORT [None]
  - CHEST DISCOMFORT [None]
